FAERS Safety Report 8103249-X (Version None)
Quarter: 2012Q1

REPORT INFORMATION
  Report Type: 
  Country: None (occurrence: None)
  Receive Date: 20120127
  Receipt Date: 20120120
  Transmission Date: 20120608
  Serious: Yes (Death, Life-Threatening)
  Sender: FDA-Public Use
  Company Number: 1000025399

PATIENT
  Age: 81 Year
  Sex: Male
  Weight: 62 kg

DRUGS (11)
  1. VENTOLAIR (BECLOMETASONE DIPROPIONATE) [Concomitant]
  2. HALDOL [Concomitant]
  3. OXYGEN [Concomitant]
  4. RAMIPRIL [Concomitant]
  5. BECLOMETHASONE DIPROPIONATE [Concomitant]
  6. ROFLUMILAST (ROFLUMILAST) (500 MICROGRAM, TABLETS) [Suspect]
     Indication: CHRONIC OBSTRUCTIVE PULMONARY DISEASE
     Dosage: 500 MCG (500 MCG,1 IN 1 D),ORAL
     Route: 048
     Dates: start: 20110726, end: 20110810
  7. ROFLUMILAST (ROFLUMILAST) (500 MICROGRAM, TABLETS) [Suspect]
     Indication: RESPIRATORY FAILURE
     Dosage: 500 MCG (500 MCG,1 IN 1 D),ORAL
     Route: 048
     Dates: start: 20110726, end: 20110810
  8. FUROSEMIDE [Concomitant]
  9. SPIRIVA [Concomitant]
  10. FORADIL [Concomitant]
  11. OMEPRAZOLE [Concomitant]

REACTIONS (11)
  - COMPLETED SUICIDE [None]
  - SEPSIS [None]
  - DEPRESSION [None]
  - PAIN IN EXTREMITY [None]
  - CHRONIC OBSTRUCTIVE PULMONARY DISEASE [None]
  - LUNG INFILTRATION [None]
  - CONDITION AGGRAVATED [None]
  - HYPOKALAEMIA [None]
  - EMPHYSEMA [None]
  - DYSPNOEA [None]
  - METABOLIC ALKALOSIS [None]
